FAERS Safety Report 18633924 (Version 1)
Quarter: 2020Q4

REPORT INFORMATION
  Report Type: Spontaneous
  Country: US (occurrence: US)
  Receive Date: 20201218
  Receipt Date: 20201218
  Transmission Date: 20210114
  Serious: No
  Sender: FDA-Public Use
  Company Number: US-BAYER-2020-280716

PATIENT
  Age: 79 Year
  Sex: Female

DRUGS (1)
  1. CLIMARA [Suspect]
     Active Substance: ESTRADIOL
     Indication: POSTMENOPAUSE
     Dosage: UNK
     Route: 062
     Dates: start: 1998

REACTIONS (3)
  - Device adhesion issue [None]
  - Device issue [None]
  - Device physical property issue [None]

NARRATIVE: CASE EVENT DATE: 202010
